FAERS Safety Report 5328233-0 (Version None)
Quarter: 2007Q2

REPORT INFORMATION
  Report Type: 
  Country: None (occurrence: None)
  Receive Date: 20070514
  Receipt Date: 20070430
  Transmission Date: 20071010
  Serious: Yes (Other)
  Sender: FDA-Public Use
  Company Number: 2007AL001779

PATIENT
  Age: 75 Year
  Sex: Male

DRUGS (2)
  1. DICLOFENAC  SODIUM DELAYED-RELEASE TABLETS, 50 MG (PUREPAC) (DICLOFENA [Suspect]
     Indication: ARTHRITIS
     Dosage: 50 MG; QD; PO
     Route: 048
     Dates: start: 20070323, end: 20070325
  2. CAPTOPRIL [Concomitant]

REACTIONS (1)
  - HAEMORRHAGE [None]
